FAERS Safety Report 6636490-3 (Version None)
Quarter: 2010Q1

REPORT INFORMATION
  Report Type: 
  Country: None (occurrence: None)
  Receive Date: 20100316
  Receipt Date: 20100311
  Transmission Date: 20100710
  Serious: Yes (Other)
  Sender: FDA-Public Use
  Company Number: US-GENENTECH-298285

PATIENT
  Sex: Male
  Weight: 30 kg

DRUGS (1)
  1. SOMATROPIN [Suspect]
     Indication: SMALL FOR DATES BABY
     Dosage: 1.6 G, QD
     Route: 058
     Dates: start: 20091212, end: 20100212

REACTIONS (2)
  - ASTHMA [None]
  - THYMUS ENLARGEMENT [None]
